FAERS Safety Report 7100881-7 (Version None)
Quarter: 2010Q4

REPORT INFORMATION
  Report Type: 
  Country: None (occurrence: None)
  Receive Date: 20101113
  Receipt Date: 20100325
  Transmission Date: 20110411
  Serious: No
  Sender: FDA-Public Use
  Company Number: US-ALLERGAN-1004010US

PATIENT
  Age: 56 Year
  Sex: Female

DRUGS (5)
  1. BOTOX COSMETIC [Suspect]
     Indication: SKIN WRINKLING
     Dosage: UNK
     Route: 030
     Dates: start: 20090801, end: 20090801
  2. RESTYLANE [Suspect]
  3. LITHIUM [Concomitant]
     Dosage: 400 MG, QD
  4. LAMICTAL [Concomitant]
     Dosage: 600 MG, QD
  5. MIRAPEX [Concomitant]

REACTIONS (2)
  - FACIAL PARESIS [None]
  - PREMATURE AGEING [None]
